FAERS Safety Report 13603246 (Version 2)
Quarter: 2017Q2

REPORT INFORMATION
  Report Type: Spontaneous
  Country: US (occurrence: US)
  Receive Date: 20170601
  Receipt Date: 20170627
  Transmission Date: 20170830
  Serious: Yes (Hospitalization)
  Sender: FDA-Public Use
  Company Number: US-PFIZER INC-2017236501

PATIENT
  Age: 37 Year
  Sex: Male
  Weight: 92.97 kg

DRUGS (1)
  1. CHANTIX [Suspect]
     Active Substance: VARENICLINE TARTRATE
     Indication: SMOKING CESSATION THERAPY
     Dosage: UNK UNK, 2X/DAY
     Dates: start: 2008

REACTIONS (5)
  - Spinal fracture [Unknown]
  - Victim of crime [Unknown]
  - Neck injury [Unknown]
  - Hip fracture [Unknown]
  - Staphylococcal infection [Unknown]

NARRATIVE: CASE EVENT DATE: 20080812
